FAERS Safety Report 9463652 (Version 2)
Quarter: 2013Q3

REPORT INFORMATION
  Report Type: Spontaneous
  Country: MX (occurrence: MX)
  Receive Date: 20130819
  Receipt Date: 20130820
  Transmission Date: 20140515
  Serious: Yes (Hospitalization)
  Sender: FDA-Public Use
  Company Number: PHHY2013MX088610

PATIENT
  Age: 26 Year
  Sex: Female

DRUGS (4)
  1. GILENYA [Suspect]
     Indication: MULTIPLE SCLEROSIS
     Dosage: 0.5 MG, QD
     Route: 048
     Dates: start: 201305
  2. SERTRALINA [Concomitant]
     Dates: start: 201208
  3. CLONAZEPAM [Concomitant]
     Dates: start: 201208
  4. TAMARINE [Concomitant]
     Indication: CONSTIPATION

REACTIONS (1)
  - Nasal neoplasm [Recovered/Resolved]
